FAERS Safety Report 5545914-4 (Version None)
Quarter: 2007Q4

REPORT INFORMATION
  Report Type: 
  Country: None (occurrence: None)
  Receive Date: 20071211
  Receipt Date: 20070926
  Transmission Date: 20080405
  Serious: No
  Sender: FDA-Public Use
  Company Number: US-ASTRAZENECA-2007UW22577

PATIENT
  Age: 32 Year
  Sex: Female

DRUGS (3)
  1. SYMBICORT [Suspect]
     Dosage: 80/4.5 UG
     Route: 055
  2. MAVIK [Concomitant]
     Indication: BLOOD PRESSURE
  3. XOPONEX (XOPENEX) [Concomitant]
     Indication: BRONCHOSPASM

REACTIONS (4)
  - ANXIETY [None]
  - HYPERTENSION [None]
  - HYPOAESTHESIA [None]
  - NECK PAIN [None]
